FAERS Safety Report 9540790 (Version 2)
Quarter: 2013Q4

REPORT INFORMATION
  Report Type: Spontaneous
  Country: FR (occurrence: FR)
  Receive Date: 20130920
  Receipt Date: 20131003
  Transmission Date: 20140711
  Serious: Yes (Death, Hospitalization)
  Sender: FDA-Public Use
  Company Number: FR-PFIZER INC-2013266471

PATIENT
  Age: 50 Year
  Sex: Female
  Weight: 57 kg

DRUGS (3)
  1. FLUOROURACILE PFIZER [Suspect]
     Indication: COLON CANCER
     Dosage: 400 MG/M2 ON 10MIN (644MG)
     Route: 040
     Dates: start: 20130910, end: 20130910
  2. FLUOROURACILE PFIZER [Suspect]
     Dosage: 3000 MG/M2 ON 46H (4800MG)
     Route: 041
     Dates: end: 20130912
  3. OXALIPLATIN [Suspect]
     Dosage: 85 MG/M2, ON 2H (135MG)
     Route: 041
     Dates: start: 20130910, end: 20130910

REACTIONS (7)
  - Chest pain [Fatal]
  - Acute pulmonary oedema [Fatal]
  - Stress cardiomyopathy [Fatal]
  - Acute coronary syndrome [Fatal]
  - Dyspnoea [Fatal]
  - Malaise [Unknown]
  - Nausea [Unknown]
